FAERS Safety Report 7301560-3 (Version None)
Quarter: 2011Q1

REPORT INFORMATION
  Report Type: 
  Country: None (occurrence: None)
  Receive Date: 20110218
  Receipt Date: 20110209
  Transmission Date: 20110831
  Serious: Yes (Other)
  Sender: FDA-Public Use
  Company Number: FR-PFIZER INC-2008068208

PATIENT
  Age: 73 Year
  Sex: Female

DRUGS (10)
  1. SELOKEN [Concomitant]
  2. DIAMICRON [Concomitant]
  3. COAPROVEL [Concomitant]
     Dosage: UNK
     Dates: end: 20080701
  4. ZECLAR [Concomitant]
     Dates: start: 20070926
  5. RISPERDAL [Concomitant]
  6. PREVISCAN [Concomitant]
  7. GLUCOR [Concomitant]
  8. MUCOMYST [Concomitant]
     Dates: start: 20070926
  9. FRACTAL [Concomitant]
  10. EXEMESTANE [Suspect]
     Indication: BREAST CANCER
     Dosage: 25 MG, 1X/DAY
     Route: 048
     Dates: start: 20030917

REACTIONS (2)
  - PULMONARY EMBOLISM [None]
  - DEEP VEIN THROMBOSIS [None]
